FAERS Safety Report 14638883 (Version 2)
Quarter: 2018Q3

REPORT INFORMATION
  Report Type: Spontaneous
  Country: DE (occurrence: DE)
  Receive Date: 20180315
  Receipt Date: 20180706
  Transmission Date: 20181010
  Serious: Yes (Other)
  Sender: FDA-Public Use
  Company Number: DE-CIPLA LTD.-2018DE11197

PATIENT

DRUGS (14)
  1. IBRUTINIB [Interacting]
     Active Substance: IBRUTINIB
     Indication: MANTLE CELL LYMPHOMA
     Dosage: 560 MG, QD
     Route: 065
  2. OXALIPLATIN. [Suspect]
     Active Substance: OXALIPLATIN
     Indication: MANTLE CELL LYMPHOMA
     Dosage: UNK
     Route: 065
  3. AMIODARONE [Interacting]
     Active Substance: AMIODARONE
     Indication: ATRIAL FIBRILLATION
     Dosage: 200 MG, QD
     Route: 065
     Dates: start: 20090101
  4. EPLERENONE. [Concomitant]
     Active Substance: EPLERENONE
     Indication: PRODUCT USED FOR UNKNOWN INDICATION
     Dosage: UNK
     Route: 065
  5. DEXAMETHASONE. [Suspect]
     Active Substance: DEXAMETHASONE
     Indication: MANTLE CELL LYMPHOMA
     Dosage: UNK
     Route: 065
  6. CYCLOPHOSPHAMIDE. [Suspect]
     Active Substance: CYCLOPHOSPHAMIDE
     Indication: MANTLE CELL LYMPHOMA
     Dosage: UNK
     Route: 065
  7. RITUXIMAB. [Suspect]
     Active Substance: RITUXIMAB
     Indication: MANTLE CELL LYMPHOMA
     Dosage: UNK
     Route: 065
  8. CISPLATIN. [Suspect]
     Active Substance: CISPLATIN
     Indication: MANTLE CELL LYMPHOMA
     Dosage: UNK
     Route: 065
  9. HYDROCHLOROTHIAZIDE. [Concomitant]
     Active Substance: HYDROCHLOROTHIAZIDE
     Indication: PRODUCT USED FOR UNKNOWN INDICATION
     Dosage: UNK
     Route: 065
  10. VINCRISTINE [Suspect]
     Active Substance: VINCRISTINE
     Indication: MANTLE CELL LYMPHOMA
     Dosage: UNK
     Route: 065
  11. CYTARABINE. [Suspect]
     Active Substance: CYTARABINE
     Indication: MANTLE CELL LYMPHOMA
     Dosage: UNK
     Route: 065
  12. PREDNISOLONE. [Suspect]
     Active Substance: PREDNISOLONE
     Indication: MANTLE CELL LYMPHOMA
     Dosage: UNK
     Route: 065
  13. DOXORUBICIN HYDROCHLORIDE. [Suspect]
     Active Substance: DOXORUBICIN HYDROCHLORIDE
     Indication: MANTLE CELL LYMPHOMA
     Dosage: UNK
     Route: 065
  14. BENDAMUSTINE [Suspect]
     Active Substance: BENDAMUSTINE
     Indication: MANTLE CELL LYMPHOMA
     Dosage: UNK
     Route: 065

REACTIONS (4)
  - Drug effect incomplete [Unknown]
  - Cardiac failure [Recovered/Resolved]
  - Drug interaction [Unknown]
  - Tachyarrhythmia [Recovered/Resolved]
